FAERS Safety Report 22148985 (Version 1)
Quarter: 2023Q1

REPORT INFORMATION
  Report Type: Spontaneous
  Country: US (occurrence: US)
  Receive Date: 20230328
  Receipt Date: 20230328
  Transmission Date: 20230418
  Serious: No
  Sender: FDA-Public Use
  Company Number: US-Blueprint Medicines Corporation-SP-US-2023-000563

PATIENT
  Sex: Female

DRUGS (2)
  1. AYVAKIT [Suspect]
     Active Substance: AVAPRITINIB
     Indication: Soft tissue sarcoma
     Dosage: 200 MG QOD ALTERNATING WITH 100 MG QOD
     Route: 065
     Dates: start: 20200518
  2. AYVAKIT [Suspect]
     Active Substance: AVAPRITINIB
     Dosage: 200 MG QOD ALTERNATING WITH 100 MG QOD
     Route: 065
     Dates: start: 20200518

REACTIONS (5)
  - Weight decreased [Unknown]
  - Nausea [Recovering/Resolving]
  - Vomiting [Unknown]
  - Fatigue [Unknown]
  - Off label use [Unknown]
